FAERS Safety Report 9868726 (Version 2)
Quarter: 2014Q1

REPORT INFORMATION
  Report Type: Report from Study
  Country: US (occurrence: US)
  Receive Date: 20140204
  Receipt Date: 20140325
  Transmission Date: 20141002
  Serious: Yes (Death, Hospitalization)
  Sender: FDA-Public Use
  Company Number: US-US-EMD SERONO, INC.-7266826

PATIENT
  Age: 54 Year
  Sex: Female

DRUGS (1)
  1. REBIF [Suspect]
     Indication: MULTIPLE SCLEROSIS
     Route: 058
     Dates: start: 20050907

REACTIONS (7)
  - Cardiomegaly [Fatal]
  - Thrombosis [Fatal]
  - Complicated fracture [Fatal]
  - Multiple sclerosis [Fatal]
  - Fall [Unknown]
  - Ankle fracture [Unknown]
  - Balance disorder [Unknown]
